FAERS Safety Report 8399226-4 (Version None)
Quarter: 2012Q2

REPORT INFORMATION
  Report Type: 
  Country: None (occurrence: None)
  Receive Date: 20120531
  Receipt Date: 20120525
  Transmission Date: 20120825
  Serious: Yes (Other)
  Sender: FDA-Public Use
  Company Number: US-GLAXOSMITHKLINE-A0979112A

PATIENT
  Age: 69 Year
  Sex: Male

DRUGS (16)
  1. SIMVASTATIN [Concomitant]
  2. AMLODIPINE [Concomitant]
  3. CELEBREX [Concomitant]
  4. LISINOPRIL [Concomitant]
  5. RANITIDINE [Concomitant]
  6. ASPIRIN [Concomitant]
  7. VITAMIN C [Concomitant]
  8. COQ10 [Concomitant]
  9. METOPROLOL TARTRATE [Concomitant]
  10. VIAGRA [Concomitant]
  11. VITAMIN D [Concomitant]
  12. ADVAIR DISKUS 100/50 [Suspect]
     Indication: COUGH
     Dosage: 1PUFF AS REQUIRED
     Route: 055
     Dates: start: 20100501
  13. CLARITIN [Concomitant]
  14. UNKNOWN [Concomitant]
  15. FISH OIL [Concomitant]
  16. METFORMIN HCL [Concomitant]

REACTIONS (2)
  - RENAL DISORDER [None]
  - PNEUMONIA [None]
